FAERS Safety Report 17303438 (Version 2)
Quarter: 2020Q1

REPORT INFORMATION
  Report Type: Spontaneous
  Country: PT (occurrence: PT)
  Receive Date: 20200122
  Receipt Date: 20200124
  Transmission Date: 20200409
  Serious: Yes (Hospitalization, Other)
  Sender: FDA-Public Use
  Company Number: PT-MYLANLABS-2020M1007140

PATIENT
  Age: 76 Year
  Sex: Female

DRUGS (4)
  1. SULFAMETHOXAZOLE W/TRIMETHOPRIM [Interacting]
     Active Substance: SULFAMETHOXAZOLE\TRIMETHOPRIM
     Indication: URINARY TRACT INFECTION
     Dosage: UNK
     Route: 065
  2. FLUCLOXACILLIN [Concomitant]
     Active Substance: FLUCLOXACILLIN
     Indication: PRODUCT USED FOR UNKNOWN INDICATION
     Dosage: UNK
     Route: 065
  3. METHOTREXATE. [Suspect]
     Active Substance: METHOTREXATE
     Indication: RHEUMATOID ARTHRITIS
     Dosage: 7.5 MILLIGRAM, QW
     Route: 065
  4. METAMIZOLE MAGNESIUM [Interacting]
     Active Substance: METAMIZOLE MAGNESIUM
     Indication: PAIN
     Dosage: UNK
     Route: 065

REACTIONS (5)
  - Renal impairment [Recovering/Resolving]
  - Drug interaction [Recovering/Resolving]
  - Chronic kidney disease [Unknown]
  - Hypoalbuminaemia [Unknown]
  - Pancytopenia [Recovering/Resolving]
